FAERS Safety Report 11512433 (Version 2)
Quarter: 2015Q4

REPORT INFORMATION
  Report Type: Spontaneous
  Country: IT (occurrence: IT)
  Receive Date: 20150916
  Receipt Date: 20151030
  Transmission Date: 20160304
  Serious: Yes (Hospitalization)
  Sender: FDA-Public Use
  Company Number: IT-AUROBINDO-AUR-APL-2015-08278

PATIENT
  Age: 90 Year
  Sex: Male

DRUGS (4)
  1. PIPERACILLIN+TAZOBACTAM INJECTION [Suspect]
     Active Substance: PIPERACILLIN SODIUM\TAZOBACTAM SODIUM
     Indication: PLEURAL EFFUSION
     Dosage: 9 G DAILY
     Route: 042
     Dates: start: 20150814, end: 20150824
  2. FUROSEMIDE. [Concomitant]
     Active Substance: FUROSEMIDE
     Indication: PRODUCT USED FOR UNKNOWN INDICATION
     Dosage: 50 MG
     Route: 048
     Dates: start: 20150814, end: 20150825
  3. METOPROLOL [Concomitant]
     Active Substance: METOPROLOL
     Indication: PRODUCT USED FOR UNKNOWN INDICATION
     Dosage: 100 MG
     Route: 048
  4. LEVOFLOXACIN 250MG [Suspect]
     Active Substance: LEVOFLOXACIN
     Indication: INFLAMMATION
     Dosage: 250 MG DAILY
     Route: 048
     Dates: start: 20150820, end: 20150825

REACTIONS (5)
  - Pruritus [Unknown]
  - Rash pruritic [Unknown]
  - Drug interaction [Unknown]
  - Drug hypersensitivity [Unknown]
  - Rash [Unknown]

NARRATIVE: CASE EVENT DATE: 20150825
